FAERS Safety Report 4693763-1 (Version None)
Quarter: 2005Q2

REPORT INFORMATION
  Report Type: 
  Country: None (occurrence: None)
  Receive Date: 20050616
  Receipt Date: 20050613
  Transmission Date: 20051028
  Serious: Yes (Hospitalization)
  Sender: FDA-Public Use
  Company Number: 200511801GDS

PATIENT
  Sex: Male

DRUGS (7)
  1. ASPIRIN [Suspect]
     Indication: THERAPEUTIC PROCEDURE
     Dosage: 100 MG, QD, ORAL
     Route: 048
     Dates: start: 20050501
  2. TENECTEPLASE [Suspect]
     Dosage: SUBCUTANEOUS
     Route: 058
     Dates: start: 20050430
  3. PLAVIX [Suspect]
     Dosage: 75 MG, TOTAL DAILY, ORAL
     Route: 048
     Dates: start: 20050501
  4. HEPARIN SODIUM [Suspect]
     Indication: THERAPEUTIC PROCEDURE
     Dosage: INTRAVENOUS
     Route: 042
     Dates: start: 20050501
  5. BELOC [Concomitant]
  6. TEMESTA [Concomitant]
  7. ELTROXIN [Concomitant]

REACTIONS (5)
  - ASTHENIA [None]
  - CEREBRAL HAEMORRHAGE [None]
  - HEMIPARESIS [None]
  - POST PROCEDURAL COMPLICATION [None]
  - THERAPY NON-RESPONDER [None]
